FAERS Safety Report 9772402 (Version 1)
Quarter: 2013Q4

REPORT INFORMATION
  Report Type: Spontaneous
  Country: FR (occurrence: FR)
  Receive Date: 20131219
  Receipt Date: 20131219
  Transmission Date: 20140711
  Serious: Yes (Life-Threatening)
  Sender: FDA-Public Use
  Company Number: FR-GE HEALTHCARE MEDICAL DIAGNOSTICS-VISP-PR-1312S-0986

PATIENT
  Age: 68 Year
  Sex: Male

DRUGS (3)
  1. VISIPAQUE [Suspect]
     Indication: RENAL ARTERY ANGIOPLASTY
     Route: 013
     Dates: start: 20130115, end: 20130115
  2. VISIPAQUE [Suspect]
     Indication: THERAPEUTIC PROCEDURE
  3. SUFENTANIL MYLAN [Concomitant]

REACTIONS (6)
  - Hypersensitivity [Recovered/Resolved]
  - Tachycardia [Recovered/Resolved]
  - Back pain [Recovered/Resolved]
  - Rash [Recovered/Resolved]
  - Pruritus [Recovering/Resolving]
  - Hypotension [Recovered/Resolved]
